FAERS Safety Report 10449850 (Version 2)
Quarter: 2014Q3

REPORT INFORMATION
  Report Type: Spontaneous
  Country: US (occurrence: US)
  Receive Date: 20140912
  Receipt Date: 20140912
  Transmission Date: 20150326
  Serious: No
  Sender: FDA-Public Use
  Company Number: US-INCYTE CORPORATION-2014IN001822

PATIENT
  Age: 72 Year
  Sex: Female
  Weight: 60.77 kg

DRUGS (7)
  1. ALLOPURINOL. [Concomitant]
     Active Substance: ALLOPURINOL
  2. MIRTAZAPINE. [Concomitant]
     Active Substance: MIRTAZAPINE
  3. TYLENOL [Concomitant]
     Active Substance: ACETAMINOPHEN
  4. TEMAZEPAM. [Concomitant]
     Active Substance: TEMAZEPAM
  5. PREVACID [Concomitant]
     Active Substance: LANSOPRAZOLE
  6. JAKAFI [Suspect]
     Active Substance: RUXOLITINIB
     Indication: MYELOFIBROSIS
     Dosage: 10 MG, BID
     Route: 048
     Dates: start: 20140402, end: 20140624
  7. LEVOTHYROXINE [Concomitant]
     Active Substance: LEVOTHYROXINE

REACTIONS (13)
  - General physical health deterioration [Not Recovered/Not Resolved]
  - Ageusia [Unknown]
  - Oesophageal ulcer [Recovering/Resolving]
  - Asthenia [Not Recovered/Not Resolved]
  - White blood cell count increased [Unknown]
  - Abdominal discomfort [Not Recovered/Not Resolved]
  - Weight decreased [Not Recovered/Not Resolved]
  - Vomiting [Not Recovered/Not Resolved]
  - Drug ineffective [Unknown]
  - Odynophagia [Recovering/Resolving]
  - Fatigue [Not Recovered/Not Resolved]
  - Hypotension [Not Recovered/Not Resolved]
  - Splenomegaly [Not Recovered/Not Resolved]

NARRATIVE: CASE EVENT DATE: 20140623
